FAERS Safety Report 7189374-9 (Version None)
Quarter: 2010Q4

REPORT INFORMATION
  Report Type: 
  Country: None (occurrence: None)
  Receive Date: 20101222
  Receipt Date: 20100831
  Transmission Date: 20110411
  Serious: No
  Sender: FDA-Public Use
  Company Number: US-AMGEN-TCS421593

PATIENT

DRUGS (6)
  1. ENBREL [Suspect]
     Indication: PSORIATIC ARTHROPATHY
     Dosage: 50 MG, 2 TIMES/WK
     Route: 058
     Dates: start: 20100204
  2. TRIAMCINOLONE [Concomitant]
     Dosage: 1 %, BID
     Route: 061
     Dates: start: 20100102
  3. METHOTREXATE [Concomitant]
     Dosage: 25 MG, Q7WK
     Route: 048
     Dates: start: 20100203
  4. GLUCOSAMINE [Concomitant]
     Dosage: 500 MG, QD
     Route: 048
  5. HYDROXYZINE HCL [Concomitant]
     Dosage: 10 MG, BID
     Route: 048
     Dates: start: 20100102
  6. ACETAMINOPHEN AND HYDROCODONE BITARTRATE [Concomitant]
     Dosage: 5 MG, QD
     Route: 048

REACTIONS (1)
  - HYPOAESTHESIA [None]
